FAERS Safety Report 6337253-9 (Version None)
Quarter: 2009Q3

REPORT INFORMATION
  Report Type: 
  Country: None (occurrence: None)
  Receive Date: 20090902
  Receipt Date: 20090827
  Transmission Date: 20100115
  Serious: Yes (Hospitalization)
  Sender: FDA-Public Use
  Company Number: US-BIOGENIDEC-2009BI027408

PATIENT
  Age: 60 Year
  Sex: Female

DRUGS (23)
  1. TYSABRI [Suspect]
     Indication: MULTIPLE SCLEROSIS
     Route: 042
     Dates: start: 20090113
  2. PAXIL [Concomitant]
     Route: 048
  3. PRAVACHOL [Concomitant]
     Route: 048
  4. PROVIGIL [Concomitant]
     Route: 048
  5. ATENOLOL [Concomitant]
     Route: 048
  6. VITAMIN B-12 [Concomitant]
  7. VOLTAREN-XR [Concomitant]
  8. REGLAN [Concomitant]
     Route: 048
  9. SOMA [Concomitant]
     Route: 048
  10. FERROUS SULFATE TAB [Concomitant]
     Route: 048
  11. SINGULAIR [Concomitant]
     Route: 048
  12. POTASSIUM CHLORIDE [Concomitant]
     Route: 048
  13. GABITRIL [Concomitant]
     Route: 048
  14. SYNTHROID [Concomitant]
     Route: 048
  15. BACLOFEN [Concomitant]
     Route: 048
  16. DOMPERIDONE [Concomitant]
  17. ASPIRIN [Concomitant]
     Route: 048
  18. METFORMIN HCL [Concomitant]
     Route: 048
  19. INSULIN [Concomitant]
  20. VERSED [Concomitant]
  21. FENTANYL TRANSDERMAL SYSTEM [Concomitant]
  22. PLAVIX [Concomitant]
  23. FAMOTIDINE [Concomitant]

REACTIONS (3)
  - ANGINA UNSTABLE [None]
  - CHEST PAIN [None]
  - COMMINUTED FRACTURE [None]
